FAERS Safety Report 11687966 (Version 11)
Quarter: 2020Q2

REPORT INFORMATION
  Report Type: Report from Study
  Country: US (occurrence: US)
  Receive Date: 20151030
  Receipt Date: 20200522
  Transmission Date: 20200713
  Serious: Yes (Other)
  Sender: FDA-Public Use
  Company Number: PHHY2015US123688

PATIENT
  Age: 42 Year
  Sex: Female

DRUGS (2)
  1. ANCEF [Concomitant]
     Active Substance: CEFAZOLIN SODIUM
     Indication: PROPHYLAXIS
     Dosage: UNK
     Route: 065
     Dates: start: 20180301, end: 20180301
  2. GILENYA [Suspect]
     Active Substance: FINGOLIMOD HYDROCHLORIDE
     Indication: MULTIPLE SCLEROSIS
     Dosage: UNK UNK, QD
     Route: 048

REACTIONS (11)
  - Alanine aminotransferase increased [Unknown]
  - Seborrhoeic keratosis [Recovered/Resolved]
  - Lymphocyte percentage decreased [Unknown]
  - Leukopenia [Not Recovered/Not Resolved]
  - Oral herpes [Not Recovered/Not Resolved]
  - Haemangioma of skin [Not Recovered/Not Resolved]
  - Gastric haemangioma [Not Recovered/Not Resolved]
  - Nail infection [Recovered/Resolved]
  - Dermal cyst [Not Recovered/Not Resolved]
  - Melanocytic naevus [Not Recovered/Not Resolved]
  - Solar lentigo [Recovered/Resolved]

NARRATIVE: CASE EVENT DATE: 20150226
